FAERS Safety Report 4513150-6 (Version None)
Quarter: 2004Q4

REPORT INFORMATION
  Report Type: 
  Country: None (occurrence: None)
  Receive Date: 20041130
  Receipt Date: 20041125
  Transmission Date: 20050328
  Serious: Yes (Life-Threatening)
  Sender: FDA-Public Use
  Company Number: DE-MERCK-0411DEU00497

PATIENT
  Age: 70 Year
  Sex: Male

DRUGS (1)
  1. COZAAR [Suspect]
     Route: 048

REACTIONS (1)
  - ASTHMA [None]
